FAERS Safety Report 9347712 (Version 1)
Quarter: 2013Q2

REPORT INFORMATION
  Report Type: Spontaneous
  Country: US (occurrence: None)
  Receive Date: 20130611
  Receipt Date: 20130611
  Transmission Date: 20140414
  Serious: Yes (Life-Threatening, Hospitalization)
  Sender: FDA-Public Use
  Company Number: None

PATIENT
  Age: 46 Year
  Sex: Female
  Weight: 94.8 kg

DRUGS (1)
  1. TRISPRINTEC [Suspect]
     Indication: MENORRHAGIA
     Route: 048
     Dates: start: 20130305, end: 20130607

REACTIONS (2)
  - Deep vein thrombosis [None]
  - Pulmonary embolism [None]
